FAERS Safety Report 6074717-X (Version None)
Quarter: 2009Q1

REPORT INFORMATION
  Report Type: 
  Country: None (occurrence: None)
  Receive Date: 20090210
  Receipt Date: 20090210
  Transmission Date: 20090719
  Serious: Yes (Other)
  Sender: FDA-Public Use
  Company Number: None

PATIENT
  Sex: Male
  Weight: 99.7913 kg

DRUGS (5)
  1. DEPAKOTE ER [Suspect]
     Dosage: 2750 MG DAILY PO 1/8/93 -} ON REGULAR DEPAKOTE 11/07 -} SWITCHED TO ER FROM STAVZOR 10/31/08 -}
     Route: 048
     Dates: start: 19930108
  2. DEPAKOTE ER [Suspect]
     Dosage: 2750 MG DAILY PO 1/8/93 -} ON REGULAR DEPAKOTE 11/07 -} SWITCHED TO ER FROM STAVZOR 10/31/08 -}
     Route: 048
     Dates: start: 20071101
  3. DEPAKOTE ER [Suspect]
     Dosage: 2750 MG DAILY PO 1/8/93 -} ON REGULAR DEPAKOTE 11/07 -} SWITCHED TO ER FROM STAVZOR 10/31/08 -}
     Route: 048
     Dates: start: 20081031
  4. ACTOS [Concomitant]
  5. CRESTOR [Concomitant]

REACTIONS (7)
  - ABNORMAL BEHAVIOUR [None]
  - ANGER [None]
  - ANTICONVULSANT DRUG LEVEL DECREASED [None]
  - HALLUCINATION, AUDITORY [None]
  - HIGH DENSITY LIPOPROTEIN DECREASED [None]
  - PARANOIA [None]
  - PRODUCT QUALITY ISSUE [None]
